FAERS Safety Report 25846493 (Version 1)
Quarter: 2025Q3

REPORT INFORMATION
  Report Type: Spontaneous
  Country: US (occurrence: US)
  Receive Date: 20250925
  Receipt Date: 20250925
  Transmission Date: 20251021
  Serious: No
  Sender: SANOFI AVENTIS
  Company Number: US-SA-2025SA286808

PATIENT
  Sex: Female

DRUGS (11)
  1. DUPIXENT [Suspect]
     Active Substance: DUPILUMAB
     Indication: Dermatitis atopic
     Dosage: 300MG SUBCUTANEOUSLY EVERY OTHER WEEK
     Route: 058
     Dates: start: 202508
  2. PROBIOTICS NOS [Concomitant]
     Active Substance: PROBIOTICS NOS
  3. PROTONIX [Concomitant]
     Active Substance: PANTOPRAZOLE SODIUM
  4. CANDESARTAN [Concomitant]
     Active Substance: CANDESARTAN
  5. FAMOTIDINE [Concomitant]
     Active Substance: FAMOTIDINE
  6. LEVOCETIRIZINE [Concomitant]
     Active Substance: LEVOCETIRIZINE
  7. METOPROLOL SUCCINATE [Concomitant]
     Active Substance: METOPROLOL SUCCINATE
  8. MIRALAX [Concomitant]
     Active Substance: POLYETHYLENE GLYCOL 3350
  9. ROSUVASTATIN [Concomitant]
     Active Substance: ROSUVASTATIN
  10. VITAMIN C [Concomitant]
     Active Substance: ASCORBIC ACID
  11. VITAMIN D [Concomitant]
     Active Substance: VITAMIN D NOS

REACTIONS (1)
  - Injection site pain [Unknown]

NARRATIVE: CASE EVENT DATE: 20250101
